FAERS Safety Report 21613784 (Version 2)
Quarter: 2022Q4

REPORT INFORMATION
  Report Type: Spontaneous
  Country: US (occurrence: US)
  Receive Date: 20221118
  Receipt Date: 20221203
  Transmission Date: 20230113
  Serious: Yes (Hospitalization, Other)
  Sender: FDA-Public Use
  Company Number: US-Accord-287137

PATIENT
  Age: 26 Year
  Sex: Male

DRUGS (4)
  1. METHOTREXATE [Suspect]
     Active Substance: METHOTREXATE
     Indication: Acute lymphocytic leukaemia
     Dosage: 12 MG (DOSED REDUCED FOR CONCURRENT BLINATUMOMAB ADMINISTRATION) ON THE NEXT DAY
     Route: 037
  2. BLINATUMOMAB [Suspect]
     Active Substance: BLINATUMOMAB
     Indication: Acute lymphocytic leukaemia
     Dosage: 28 MCG ON DAY-1
  3. PONATINIB [Concomitant]
     Active Substance: PONATINIB
     Indication: Acute lymphocytic leukaemia
  4. METHOTREXATE [Suspect]
     Active Substance: METHOTREXATE
     Indication: Acute lymphocytic leukaemia
     Dosage: WEEKLY, 7 DOSES
     Route: 037

REACTIONS (5)
  - Neurotoxicity [Recovered/Resolved]
  - Mental status changes [Recovered/Resolved]
  - Disorganised speech [Recovered/Resolved]
  - Asthenia [Recovered/Resolved]
  - Generalised tonic-clonic seizure [Recovered/Resolved]
